FAERS Safety Report 21353418 (Version 1)
Quarter: 2022Q3

REPORT INFORMATION
  Report Type: Spontaneous
  Country: FR (occurrence: FR)
  Receive Date: 20220920
  Receipt Date: 20220920
  Transmission Date: 20221027
  Serious: Yes (Life-Threatening)
  Sender: FDA-Public Use
  Company Number: None

PATIENT
  Age: 64 Year
  Sex: Female
  Weight: 38.4 kg

DRUGS (7)
  1. ZOPICLONE [Suspect]
     Active Substance: ZOPICLONE
     Indication: Major depression
     Dosage: UNIT DOSE : 7.5 MG , FREQUENCY TIME : 1 DAY , THERAPY END DATE : NASK
     Dates: start: 202205
  2. MIRTAZAPINE [Suspect]
     Active Substance: MIRTAZAPINE
     Indication: Major depression
     Dosage: UNIT DOSE : 15 MG , FREQUENCY TIME : 1 DAY , THERAPY END DATE : NASK
     Dates: start: 202205
  3. MIANSERIN HYDROCHLORIDE [Suspect]
     Active Substance: MIANSERIN HYDROCHLORIDE
     Indication: Major depression
     Dosage: CHLORHYDRATE DE MIANSERINE , UNIT DOSE : 60 MG , FREQUENCY TIME : 1 DAY , THERAPY END DATE : NASK
     Dates: start: 202205
  4. OLANZAPINE [Suspect]
     Active Substance: OLANZAPINE
     Indication: Major depression
     Dosage: UNIT DOSE : 5 MG , FREQUENCY TIME : 1 DAY , THERAPY END DATE : NASK
     Dates: start: 202205
  5. LORAZEPAM [Suspect]
     Active Substance: LORAZEPAM
     Indication: Major depression
     Dosage: UNIT DOSE : 1 MG , FREQUENCY TIME : 4 HOUR , THERAPY END DATE : NASK
     Dates: start: 202205
  6. TERALITHE [Suspect]
     Active Substance: LITHIUM CARBONATE
     Indication: Major depression
     Dosage: PROLONGED-RELEASE SCORED TABLET , FORM STRENGTH : 400 MG , UNIT DOSE : 200 MG , FREQUENCY TIME : 1 D
     Dates: start: 202205
  7. WARFARIN SODIUM [Concomitant]
     Active Substance: WARFARIN SODIUM
     Indication: Thrombosis prophylaxis
     Dosage: ALTERNATING 4 AND 5 MG PER DAY, SCORED TABLET , FORM STRENGTH : 2 MG

REACTIONS (1)
  - Ischaemic stroke [Recovering/Resolving]

NARRATIVE: CASE EVENT DATE: 20220823
